FAERS Safety Report 7126272-0 (Version None)
Quarter: 2010Q4

REPORT INFORMATION
  Report Type: 
  Country: None (occurrence: None)
  Receive Date: 20101129
  Receipt Date: 20101117
  Transmission Date: 20110411
  Serious: Yes (Death)
  Sender: FDA-Public Use
  Company Number: RS-JNJFOC-20101107491

PATIENT
  Age: 6 Decade
  Sex: Male

DRUGS (7)
  1. RISPOLEPT CONSTA [Suspect]
     Indication: BIPOLAR DISORDER
     Route: 030
  2. RISPOLEPT CONSTA [Suspect]
     Indication: PSYCHOTIC DISORDER
     Route: 030
  3. LAMICTAL [Suspect]
     Indication: BIPOLAR DISORDER
     Route: 048
  4. LORAZEPAM [Suspect]
     Indication: ILL-DEFINED DISORDER
     Dosage: AS NECESSARY
     Route: 065
  5. VENLAFAXINE [Suspect]
     Indication: BIPOLAR DISORDER
     Route: 065
  6. LEPONEX [Suspect]
     Indication: BIPOLAR DISORDER
     Route: 065
  7. LEPONEX [Suspect]
     Indication: PSYCHOTIC DISORDER
     Route: 065

REACTIONS (2)
  - COMPLETED SUICIDE [None]
  - DEPRESSION [None]
